FAERS Safety Report 8111347-X (Version None)
Quarter: 2012Q1

REPORT INFORMATION
  Report Type: 
  Country: None (occurrence: None)
  Receive Date: 20120203
  Receipt Date: 20110919
  Transmission Date: 20120608
  Serious: No
  Sender: FDA-Public Use
  Company Number: US-GLAXOSMITHKLINE-A0945151A

PATIENT
  Sex: Male

DRUGS (9)
  1. GEMFIBROZIL [Concomitant]
  2. DOXAZOSIN MESYLATE [Concomitant]
  3. PAROXETINE [Concomitant]
  4. KLONOPIN [Concomitant]
  5. LAMICTAL [Suspect]
     Indication: BIPOLAR DISORDER
     Dosage: 300MG AT NIGHT
     Route: 048
     Dates: end: 20110823
  6. LISINOPRIL [Concomitant]
  7. IBUPROFEN [Concomitant]
  8. MEPERIDINE HCL [Concomitant]
  9. FUROSEMIDE [Concomitant]

REACTIONS (1)
  - HEAT RASH [None]
